FAERS Safety Report 8436585-8 (Version None)
Quarter: 2012Q2

REPORT INFORMATION
  Report Type: 
  Country: None (occurrence: None)
  Receive Date: 20120614
  Receipt Date: 20120604
  Transmission Date: 20120825
  Serious: Yes (Hospitalization)
  Sender: FDA-Public Use
  Company Number: TW-CELGENEUS-153-21880-11080180

PATIENT
  Sex: Male
  Weight: 61 kg

DRUGS (7)
  1. ZOMETA [Concomitant]
     Indication: MULTIPLE MYELOMA
     Route: 065
     Dates: start: 20090710
  2. POVIDONE IODINE [Concomitant]
     Indication: ANTI-INFECTIVE THERAPY
     Route: 048
     Dates: start: 20110729, end: 20110804
  3. REVLIMID [Suspect]
     Dosage: 25 MILLIGRAM
     Route: 048
     Dates: start: 20110708, end: 20110728
  4. IWELL [Concomitant]
     Indication: PROPHYLAXIS AGAINST GASTROINTESTINAL ULCER
     Dosage: 3 TABLET
     Route: 048
     Dates: start: 20110729, end: 20110804
  5. REVLIMID [Suspect]
     Indication: MULTIPLE MYELOMA
     Dosage: 25 MILLIGRAM
     Route: 048
     Dates: start: 20110610
  6. AMOXICILLIN [Concomitant]
     Indication: ANTIINFLAMMATORY THERAPY
     Dosage: 150 MILLIGRAM
     Route: 048
     Dates: start: 20110729, end: 20110804
  7. ACETAMINOPHEN [Concomitant]
     Indication: PAIN
     Dosage: 2000 MILLIGRAM
     Route: 048
     Dates: start: 20110729, end: 20110804

REACTIONS (3)
  - ABSCESS ORAL [None]
  - OSTEOMYELITIS [None]
  - CELLULITIS [None]
